FAERS Safety Report 6114556-4 (Version None)
Quarter: 2009Q1

REPORT INFORMATION
  Report Type: 
  Country: None (occurrence: None)
  Receive Date: 20090313
  Receipt Date: 20090216
  Transmission Date: 20090719
  Serious: No
  Sender: FDA-Public Use
  Company Number: US-BAYER-200913404NA

PATIENT
  Age: 36 Year
  Sex: Female

DRUGS (1)
  1. MIRENA [Suspect]
     Indication: CONTRACEPTION
     Route: 015
     Dates: start: 20080901

REACTIONS (8)
  - ABDOMINAL PAIN LOWER [None]
  - DISTURBANCE IN ATTENTION [None]
  - LIBIDO DECREASED [None]
  - POSTPARTUM DEPRESSION [None]
  - PROCEDURAL PAIN [None]
  - TINNITUS [None]
  - VERTIGO [None]
  - VISION BLURRED [None]
